FAERS Safety Report 22341917 (Version 3)
Quarter: 2023Q2

REPORT INFORMATION
  Report Type: Report from Study
  Country: US (occurrence: US)
  Receive Date: 20230518
  Receipt Date: 20230605
  Transmission Date: 20230721
  Serious: Yes (Other)
  Sender: FDA-Public Use
  Company Number: US-BEH-2023158578

PATIENT
  Age: 42 Year
  Sex: Female
  Weight: 54.422 kg

DRUGS (4)
  1. HIZENTRA [Suspect]
     Active Substance: HUMAN IMMUNOGLOBULIN G
     Indication: Primary immunodeficiency syndrome
     Dosage: 7 GRAM, QW
     Route: 058
     Dates: start: 20230501, end: 20230514
  2. HYDROXYZINE [Concomitant]
     Active Substance: HYDROXYZINE HYDROCHLORIDE
  3. AMITRIPTYLINE [Concomitant]
     Active Substance: AMITRIPTYLINE
     Indication: Aneurysm
  4. AMITRIPTYLINE [Concomitant]
     Active Substance: AMITRIPTYLINE
     Indication: Aneurysm

REACTIONS (32)
  - Infusion site vesicles [Not Recovered/Not Resolved]
  - Infusion site pain [Not Recovered/Not Resolved]
  - Pain [Not Recovered/Not Resolved]
  - Tremor [Not Recovered/Not Resolved]
  - Headache [Not Recovered/Not Resolved]
  - Urine output increased [Not Recovered/Not Resolved]
  - Muscle spasms [Not Recovered/Not Resolved]
  - Aneurysm [Not Recovered/Not Resolved]
  - Gait inability [Not Recovered/Not Resolved]
  - Malaise [Not Recovered/Not Resolved]
  - Cardiac disorder [Not Recovered/Not Resolved]
  - Autoimmune disorder [Not Recovered/Not Resolved]
  - Renal disorder [Unknown]
  - Unevaluable event [Unknown]
  - Urticaria [Recovering/Resolving]
  - Skin discolouration [Recovering/Resolving]
  - Thirst [Recovering/Resolving]
  - Renal pain [Recovering/Resolving]
  - Swelling [Recovering/Resolving]
  - Infusion site extravasation [Recovering/Resolving]
  - Abdominal discomfort [Recovering/Resolving]
  - Piloerection [Recovering/Resolving]
  - Hypermetabolism [Unknown]
  - Heart rate decreased [Unknown]
  - Oxygen consumption decreased [Unknown]
  - Muscle spasms [Unknown]
  - Fluid retention [Unknown]
  - Migraine [Not Recovered/Not Resolved]
  - Stevens-Johnson syndrome [Not Recovered/Not Resolved]
  - Skin discolouration [Not Recovered/Not Resolved]
  - Mouth haemorrhage [Not Recovered/Not Resolved]
  - Stomatitis [Not Recovered/Not Resolved]

NARRATIVE: CASE EVENT DATE: 20230501
